FAERS Safety Report 9299343 (Version 1)
Quarter: 2013Q2

REPORT INFORMATION
  Report Type: Spontaneous
  Country: GB (occurrence: GB)
  Receive Date: 20130520
  Receipt Date: 20130520
  Transmission Date: 20140414
  Serious: Yes (Other)
  Sender: FDA-Public Use
  Company Number: GB-PFIZER INC-2013149116

PATIENT
  Age: 66 Year
  Sex: Female

DRUGS (7)
  1. CHAMPIX [Suspect]
     Dosage: 0.5 MG, UNK
     Route: 048
     Dates: start: 20130409, end: 20130416
  2. PREDNISOLONE [Concomitant]
     Dosage: 0.5 MG, 3X/DAY
  3. CITALOPRAM [Concomitant]
     Dosage: 10 MG, 2X/DAY
  4. VENTOLIN [Concomitant]
  5. SPIRIVA [Concomitant]
     Dosage: 18 UG, 1X/DAY
     Route: 055
  6. SYMBICORT [Concomitant]
     Dosage: 2 DF, 2X/DAY 100/12 TURBOINHALER 2 PUFFS TWICE PER DAY
     Route: 055
  7. PREMIQUE [Concomitant]
     Dosage: 0.3 MG, 1X/DAY

REACTIONS (5)
  - Joint swelling [Recovered/Resolved]
  - Feeling abnormal [Recovered/Resolved]
  - Hypersomnia [Recovered/Resolved]
  - Fatigue [Recovered/Resolved]
  - Malaise [Recovered/Resolved]
